FAERS Safety Report 24348915 (Version 3)
Quarter: 2025Q3

REPORT INFORMATION
  Report Type: Spontaneous
  Country: CA (occurrence: CA)
  Receive Date: 20240923
  Receipt Date: 20250919
  Transmission Date: 20251020
  Serious: Yes (Hospitalization, Other)
  Sender: AUROBINDO
  Company Number: CA-AUROBINDO-AUR-APL-2024-044993

PATIENT
  Age: 53 Year
  Sex: Male

DRUGS (20)
  1. ACYCLOVIR [Suspect]
     Active Substance: ACYCLOVIR
     Indication: Herpes simplex
     Dosage: 10 MILLIGRAM/KILOGRAM, 3 TIMES A DAY
     Route: 042
     Dates: start: 2017
  2. CEPHALEXIN [Suspect]
     Active Substance: CEPHALEXIN
     Indication: Antibiotic therapy
     Route: 048
  3. VALACYCLOVIR HYDROCHLORIDE [Suspect]
     Active Substance: VALACYCLOVIR HYDROCHLORIDE
     Indication: Herpes simplex
     Route: 048
  4. VALACYCLOVIR HYDROCHLORIDE [Suspect]
     Active Substance: VALACYCLOVIR HYDROCHLORIDE
     Indication: Superinfection bacterial
     Route: 065
  5. CIDOFOVIR [Suspect]
     Active Substance: CIDOFOVIR
     Indication: Herpes simplex
     Route: 061
     Dates: start: 2020
  6. CIDOFOVIR [Suspect]
     Active Substance: CIDOFOVIR
     Route: 042
     Dates: start: 2020
  7. FOSCARNET [Suspect]
     Active Substance: FOSCARNET
     Indication: Herpes simplex
     Dosage: 90 MILLIGRAM/KILOGRAM, TWO TIMES A DAY
     Route: 042
  8. FOSCARNET [Suspect]
     Active Substance: FOSCARNET
     Route: 061
  9. IMIQUIMOD [Suspect]
     Active Substance: IMIQUIMOD
     Indication: Herpes simplex
     Route: 061
     Dates: start: 2018
  10. PRITELIVIR [Suspect]
     Active Substance: PRITELIVIR
     Indication: Herpes simplex
     Route: 065
     Dates: start: 2022
  11. PRITELIVIR [Suspect]
     Active Substance: PRITELIVIR
     Route: 065
     Dates: start: 2022
  12. CIDOFOVIR [Suspect]
     Active Substance: CIDOFOVIR
     Indication: Oral herpes
     Route: 061
  13. CIDOFOVIR [Suspect]
     Active Substance: CIDOFOVIR
     Route: 042
  14. ABACAVIR [Concomitant]
     Active Substance: ABACAVIR
     Indication: HIV infection
     Route: 065
  15. DOLUTEGRAVIR [Concomitant]
     Active Substance: DOLUTEGRAVIR
     Indication: HIV infection
     Route: 065
  16. LAMIVUDINE [Concomitant]
     Active Substance: LAMIVUDINE
     Indication: HIV infection
     Route: 065
  17. CEPHALEXIN [Concomitant]
     Active Substance: CEPHALEXIN
     Indication: Antibiotic therapy
     Route: 048
  18. FOSCARNET [Concomitant]
     Active Substance: FOSCARNET
     Indication: Oral herpes
     Route: 061
  19. FOSCARNET [Concomitant]
     Active Substance: FOSCARNET
     Route: 042
  20. FOSCARNET [Concomitant]
     Active Substance: FOSCARNET
     Dosage: 90 MILLIGRAM/KILOGRAM, TWO TIMES A DAY
     Route: 042

REACTIONS (2)
  - Drug ineffective [Unknown]
  - Drug resistance [Unknown]
